FAERS Safety Report 8828877 (Version 2)
Quarter: 2012Q4

REPORT INFORMATION
  Report Type: Report from Study
  Country: JP (occurrence: JP)
  Receive Date: 20121008
  Receipt Date: 20121026
  Transmission Date: 20130627
  Serious: Yes (Hospitalization)
  Sender: FDA-Public Use
  Company Number: JP-PFIZER INC-2012241639

PATIENT
  Age: 60 Year
  Sex: Male
  Weight: 77 kg

DRUGS (22)
  1. CAMPTO [Suspect]
     Indication: PANCREATIC CARCINOMA
     Dosage: 353 mg, cyclic once in 2 weeks
     Route: 041
     Dates: start: 20120410
  2. CAMPTO [Suspect]
     Dosage: 235 mg, cyclic once in 2weeks
     Route: 041
     Dates: start: 20120911, end: 20120911
  3. ELPLAT [Suspect]
     Indication: PANCREATIC CARCINOMA
     Dosage: 167 mg, cyclic once in 2 weeks
     Route: 041
     Dates: start: 20120410, end: 20120911
  4. LEVOFOLINATE [Suspect]
     Indication: PANCREATIC CARCINOMA
     Dosage: 392 mg, cyclic once in 2 weeks
     Route: 041
     Dates: start: 20120410, end: 20120911
  5. 5-FU [Suspect]
     Indication: PANCREATIC CARCINOMA
     Dosage: 784 mg, cyclic once in 2 weeks
     Route: 040
     Dates: start: 20120410, end: 20120911
  6. 5-FU [Suspect]
     Dosage: 4704 mg, cyclic once in 2 weeks
     Route: 041
     Dates: start: 20120410, end: 20120912
  7. OPSO [Concomitant]
     Dosage: UNK
     Dates: start: 20120723
  8. KENTAN [Concomitant]
     Dosage: UNK
     Dates: start: 20120402
  9. PARIET [Concomitant]
     Dosage: UNK
     Dates: start: 20120402
  10. MAG-LAX [Concomitant]
     Dosage: UNK
     Dates: start: 20120508
  11. HANGE-SHASHIN-TO [Concomitant]
     Dosage: UNK
     Dates: start: 20120814
  12. LOPERAMIDE [Concomitant]
     Dosage: UNK
     Dates: start: 20120907
  13. LAC B [Concomitant]
     Dosage: UNK
     Dates: start: 20120911
  14. EMEND [Concomitant]
     Indication: PROPHYLAXIS OF NAUSEA AND VOMITING
     Dosage: UNK
     Dates: start: 20120410
  15. ALOXI [Concomitant]
     Indication: PROPHYLAXIS OF NAUSEA AND VOMITING
     Dosage: UNK
     Dates: start: 20120410
  16. DEXART [Concomitant]
     Indication: PROPHYLAXIS OF NAUSEA AND VOMITING
     Dosage: UNK
     Dates: start: 20120410
  17. LACTEC [Concomitant]
     Dosage: UNK
     Dates: start: 20120919
  18. ROPION [Concomitant]
     Dosage: UNK
     Dates: start: 20120919
  19. ZOSYN [Concomitant]
     Dosage: UNK
     Dates: start: 20120919
  20. PREDOPA [Concomitant]
     Dosage: UNK
     Dates: start: 20120919
  21. VANCOMYCIN [Concomitant]
     Dosage: UNK
     Dates: start: 20120920
  22. CEFAZOLIN SODIUM [Concomitant]
     Dosage: UNK
     Dates: start: 20120924

REACTIONS (2)
  - Sepsis [Recovering/Resolving]
  - Liver abscess [Recovered/Resolved]
